FAERS Safety Report 14093459 (Version 1)
Quarter: 2017Q4

REPORT INFORMATION
  Report Type: Spontaneous
  Country: TR (occurrence: TR)
  Receive Date: 20171016
  Receipt Date: 20171016
  Transmission Date: 20180321
  Serious: Yes (Other)
  Sender: FDA-Public Use
  Company Number: TR-PFIZER INC-2014257141

PATIENT
  Age: 58 Year
  Sex: Male
  Weight: 65 kg

DRUGS (3)
  1. MEROPENEM. [Suspect]
     Active Substance: MEROPENEM
     Indication: NEUTROPENIA
     Dosage: UNK
  2. VORICONAZOLE. [Concomitant]
     Active Substance: VORICONAZOLE
     Indication: FUNGAL INFECTION
     Dosage: 4 MG/KG, 2X/DAY
  3. ERAXIS [Suspect]
     Active Substance: ANIDULAFUNGIN
     Indication: FUNGAEMIA
     Dosage: 100 MG, 1X/DAY
     Route: 042
     Dates: start: 20140913, end: 20140913

REACTIONS (2)
  - Erythema [Recovered/Resolved]
  - Tachypnoea [Recovered/Resolved]

NARRATIVE: CASE EVENT DATE: 20140913
